FAERS Safety Report 16569034 (Version 1)
Quarter: 2019Q3

REPORT INFORMATION
  Report Type: Spontaneous
  Country: FR (occurrence: FR)
  Receive Date: 20190713
  Receipt Date: 20190713
  Transmission Date: 20191004
  Serious: Yes (Hospitalization)
  Sender: FDA-Public Use
  Company Number: PHHY2019FR159986

PATIENT
  Age: 74 Year
  Sex: Male
  Weight: 97 kg

DRUGS (1)
  1. NISISCO [Suspect]
     Active Substance: HYDROCHLOROTHIAZIDE\VALSARTAN
     Indication: HYPERTENSION
     Dosage: 1 DF, QD
     Route: 048
     Dates: start: 201811, end: 20190525

REACTIONS (3)
  - Toxic skin eruption [Recovering/Resolving]
  - Eosinophilia [Recovering/Resolving]
  - Dermatitis exfoliative generalised [Recovered/Resolved]

NARRATIVE: CASE EVENT DATE: 201811
